FAERS Safety Report 4878129-3 (Version None)
Quarter: 2005Q4

REPORT INFORMATION
  Report Type: 
  Country: None (occurrence: None)
  Receive Date: 20051209
  Receipt Date: 20050928
  Transmission Date: 20060501
  Serious: No
  Sender: FDA-Public Use
  Company Number: SUS1-2005-00719

PATIENT
  Sex: Male

DRUGS (18)
  1. FOSRENOL [Suspect]
     Indication: HYPERPHOSPHATAEMIA
     Dosage: 500 MG, 3X/DAY:TID, ORAL
     Route: 048
     Dates: start: 20050919
  2. RENAGEL [Concomitant]
  3. PHOSLO [Concomitant]
  4. NEURONTIN [Concomitant]
  5. METOPROLOL (METOPROLOL) [Concomitant]
  6. ACETYLSALICYLIC ACID SRT [Concomitant]
  7. NEPHROCAPS (FOLIC ACID, VITAMINS NOS) [Concomitant]
  8. VICODIN [Concomitant]
  9. RESTORIL [Concomitant]
  10. INSULIN, REGULAR (INSULIN) [Concomitant]
  11. INSULIN SUSPENSION, NPH (INSULIN INJECTION, ISOPHANE) [Concomitant]
  12. PROCARDIA [Concomitant]
  13. OMEGA 3 (FISH OIL) [Concomitant]
  14. COLACE (DOCUSATE SODIUM) [Concomitant]
  15. ZEMPLAR [Concomitant]
  16. EPOGEN [Concomitant]
  17. VENOFER [Concomitant]
  18. QUININE SULFATE [Concomitant]

REACTIONS (1)
  - HAEMORRHOIDS [None]
